FAERS Safety Report 10424911 (Version 7)
Quarter: 2016Q3

REPORT INFORMATION
  Report Type: Report from Study
  Country: US (occurrence: US)
  Receive Date: 20140902
  Receipt Date: 20160706
  Transmission Date: 20161109
  Serious: Yes (Other)
  Sender: FDA-Public Use
  Company Number: US-SA-2014SA046448

PATIENT
  Age: 47 Year
  Sex: Male

DRUGS (1)
  1. AUBAGIO [Suspect]
     Active Substance: TERIFLUNOMIDE
     Indication: MULTIPLE SCLEROSIS
     Route: 048
     Dates: start: 20140324

REACTIONS (12)
  - Foot fracture [Unknown]
  - Back pain [Recovered/Resolved]
  - Hair growth abnormal [Unknown]
  - Balance disorder [Unknown]
  - Fall [Unknown]
  - Muscular weakness [Not Recovered/Not Resolved]
  - Renal pain [Not Recovered/Not Resolved]
  - Weight increased [Unknown]
  - Alopecia [Not Recovered/Not Resolved]
  - Gait disturbance [Unknown]
  - Alopecia [Recovered/Resolved]
  - Insomnia [Not Recovered/Not Resolved]

NARRATIVE: CASE EVENT DATE: 20140818
